FAERS Safety Report 6628967-1 (Version None)
Quarter: 2010Q1

REPORT INFORMATION
  Report Type: 
  Country: None (occurrence: None)
  Receive Date: 20100311
  Receipt Date: 20090805
  Transmission Date: 20100710
  Serious: No
  Sender: FDA-Public Use
  Company Number: US-BIOGENIDEC-2009BI024772

PATIENT
  Sex: Female

DRUGS (3)
  1. AVONEX [Suspect]
     Indication: MULTIPLE SCLEROSIS
     Route: 030
     Dates: start: 20010516, end: 20070101
  2. AVONEX [Suspect]
     Route: 030
     Dates: start: 20070805, end: 20070831
  3. AVONEX [Suspect]
     Route: 030

REACTIONS (1)
  - INJECTION SITE MASS [None]
